FAERS Safety Report 10175119 (Version 2)
Quarter: 2014Q2

REPORT INFORMATION
  Report Type: Spontaneous
  Country: RU (occurrence: RU)
  Receive Date: 20140515
  Receipt Date: 20140521
  Transmission Date: 20141212
  Serious: Yes (Other)
  Sender: FDA-Public Use
  Company Number: PHHY2014RU056149

PATIENT
  Age: 11 Year
  Sex: Male

DRUGS (1)
  1. FORADIL COMBI [Suspect]
     Indication: ASTHMA
     Dosage: 1 DF, BID

REACTIONS (4)
  - Vertigo [Unknown]
  - Nausea [Unknown]
  - Bronchospasm paradoxical [Unknown]
  - Cough [Unknown]
